FAERS Safety Report 18196831 (Version 1)
Quarter: 2020Q3

REPORT INFORMATION
  Report Type: Spontaneous
  Country: US (occurrence: US)
  Receive Date: 20200826
  Receipt Date: 20200826
  Transmission Date: 20201103
  Serious: No
  Sender: FDA-Public Use
  Company Number: US-SPECGX-T201906738

PATIENT
  Sex: Female

DRUGS (2)
  1. OXYCODONE/ACETAMINOPHEN [Suspect]
     Active Substance: ACETAMINOPHEN\OXYCODONE HYDROCHLORIDE
     Dosage: 1 DOSAGE FORM, Q6H
     Route: 048
     Dates: start: 2019
  2. OXYCODONE/ACETAMINOPHEN [Suspect]
     Active Substance: ACETAMINOPHEN\OXYCODONE HYDROCHLORIDE
     Indication: PAIN
     Dosage: 1 DOSAGE FORM, Q6H
     Route: 048
     Dates: start: 201909

REACTIONS (6)
  - Heart rate increased [Unknown]
  - Feeling jittery [Unknown]
  - Drug ineffective [Unknown]
  - Withdrawal syndrome [Unknown]
  - Anxiety [Unknown]
  - Product taste abnormal [Unknown]

NARRATIVE: CASE EVENT DATE: 2019
